FAERS Safety Report 6508326-2 (Version None)
Quarter: 2009Q4

REPORT INFORMATION
  Report Type: 
  Country: None (occurrence: None)
  Receive Date: 20091221
  Receipt Date: 20090428
  Transmission Date: 20100525
  Serious: No
  Sender: FDA-Public Use
  Company Number: US-ASTRAZENECA-2008UW07259

PATIENT
  Age: 88 Year
  Sex: Female
  Weight: 46.3 kg

DRUGS (17)
  1. CRESTOR [Suspect]
     Indication: HYPERCHOLESTEROLAEMIA
     Route: 048
     Dates: start: 20070101
  2. LOTREL [Concomitant]
  3. FUROSEMIDE [Concomitant]
  4. TOPROL-XL [Concomitant]
  5. BENICAR [Concomitant]
  6. CENTRUM [Concomitant]
  7. CALTRATE WITH D [Concomitant]
  8. ACTONEL [Concomitant]
  9. AZOR [Concomitant]
     Indication: HYPERTENSION
  10. TEKTURNA [Concomitant]
  11. METOPROLOL SUCCINATE [Concomitant]
  12. POTASSIUM [Concomitant]
  13. VITAMIN B 100 [Concomitant]
  14. ASCORBIC ACID [Concomitant]
  15. ZINC [Concomitant]
     Indication: EYE DISORDER
  16. ZETIA [Concomitant]
  17. ESTRACE [Concomitant]
     Indication: OESTROGEN REPLACEMENT THERAPY

REACTIONS (4)
  - CONSTIPATION [None]
  - DIARRHOEA [None]
  - POLLAKIURIA [None]
  - URINE OUTPUT INCREASED [None]
